FAERS Safety Report 4883071-8 (Version None)
Quarter: 2006Q1

REPORT INFORMATION
  Report Type: 
  Country: None (occurrence: None)
  Receive Date: 20060118
  Receipt Date: 20060109
  Transmission Date: 20060701
  Serious: Yes (Hospitalization)
  Sender: FDA-Public Use
  Company Number: FR-AVENTIS-200610151FR

PATIENT
  Age: 59 Year
  Sex: Male

DRUGS (7)
  1. ARAVA [Suspect]
     Route: 048
     Dates: start: 20030103, end: 20030105
  2. ARAVA [Suspect]
     Route: 048
     Dates: start: 20030106, end: 20030210
  3. DI-ANTALVIC [Suspect]
     Route: 048
     Dates: start: 20020904, end: 20021231
  4. PROFENID [Suspect]
     Dates: start: 20020904, end: 20021231
  5. VIOXX [Suspect]
     Route: 048
     Dates: end: 20030211
  6. VOLDAL [Suspect]
     Route: 048
     Dates: start: 20020904, end: 20021231
  7. SOLU-MEDROL [Concomitant]
     Route: 048
     Dates: end: 20030211

REACTIONS (4)
  - CARDIAC FAILURE [None]
  - COMA [None]
  - PULMONARY OEDEMA [None]
  - RENAL FAILURE [None]
